FAERS Safety Report 6752479-8 (Version None)
Quarter: 2010Q2

REPORT INFORMATION
  Report Type: 
  Country: None (occurrence: None)
  Receive Date: 20100602
  Receipt Date: 20100521
  Transmission Date: 20101027
  Serious: Yes (Other)
  Sender: FDA-Public Use
  Company Number: US-WYE-H15307110

PATIENT
  Sex: Male
  Weight: 153.45 kg

DRUGS (3)
  1. PRISTIQ [Suspect]
     Indication: DEPRESSION
     Route: 048
     Dates: start: 20100520
  2. PRISTIQ [Suspect]
     Indication: ANXIETY
  3. PERCOCET [Concomitant]
     Dosage: UNKNOWN

REACTIONS (16)
  - ABDOMINAL PAIN UPPER [None]
  - AGGRESSION [None]
  - ASTHMA [None]
  - CONDITION AGGRAVATED [None]
  - DIARRHOEA [None]
  - FEELING ABNORMAL [None]
  - HEADACHE [None]
  - INSOMNIA [None]
  - MENTAL IMPAIRMENT [None]
  - MOOD SWINGS [None]
  - NAUSEA [None]
  - NERVOUSNESS [None]
  - PYREXIA [None]
  - RESTLESSNESS [None]
  - SELF INJURIOUS BEHAVIOUR [None]
  - SPEECH DISORDER [None]
